FAERS Safety Report 5840129-4 (Version None)
Quarter: 2008Q3

REPORT INFORMATION
  Report Type: 
  Country: None (occurrence: None)
  Receive Date: 20080807
  Receipt Date: 20080807
  Transmission Date: 20090109
  Serious: Yes (Life-Threatening)
  Sender: FDA-Public Use
  Company Number: None

PATIENT
  Age: 63 Year
  Sex: Female
  Weight: 70.7611 kg

DRUGS (1)
  1. LAMISIL [Suspect]

REACTIONS (9)
  - ABASIA [None]
  - ACUTE GENERALISED EXANTHEMATOUS PUSTULOSIS [None]
  - ANOREXIA [None]
  - ASTHENIA [None]
  - CHEMICAL BURN OF SKIN [None]
  - OEDEMA PERIPHERAL [None]
  - PAIN IN EXTREMITY [None]
  - PRURITUS [None]
  - PYREXIA [None]
